FAERS Safety Report 6356187-7 (Version None)
Quarter: 2009Q3

REPORT INFORMATION
  Report Type: 
  Country: None (occurrence: None)
  Receive Date: 20090915
  Receipt Date: 20090902
  Transmission Date: 20100115
  Serious: Yes (Hospitalization, Other)
  Sender: FDA-Public Use
  Company Number: FR-BAYER-200931562GPV

PATIENT
  Age: 0 Hour
  Sex: Male
  Weight: 1.82 kg

DRUGS (5)
  1. MIRENA [Suspect]
     Indication: DRUG USE FOR UNKNOWN INDICATION
     Route: 064
  2. EPITOMAX [Suspect]
     Indication: EPILEPSY
     Route: 064
  3. TEGRETOL [Suspect]
     Indication: EPILEPSY
     Route: 064
  4. URBANYL [Suspect]
     Indication: EPILEPSY
     Route: 064
  5. LAMICTAL [Suspect]
     Indication: EPILEPSY
     Route: 064

REACTIONS (8)
  - CEREBRAL HAEMORRHAGE [None]
  - CONGENITAL HYPEREXTENSION OF SPINE [None]
  - CONGENITAL TORTICOLLIS [None]
  - HYPERTONIA [None]
  - HYPOTONIA [None]
  - HYPOTONIA NEONATAL [None]
  - PLAGIOCEPHALY [None]
  - PREMATURE BABY [None]
